FAERS Safety Report 8840312 (Version 2)
Quarter: 2012Q4

REPORT INFORMATION
  Report Type: 
  Country: US (occurrence: US)
  Receive Date: 20121015
  Receipt Date: 20121211
  Transmission Date: 20130627
  Serious: Yes (Other)
  Sender: FDA-Public Use
  Company Number: US-CELGENEUS-163-20785-12101318

PATIENT
  Age: 71 Year
  Sex: Male

DRUGS (1)
  1. THALOMID [Suspect]
     Indication: MYELOFIBROSIS WITH MYELOMETAPLASIA
     Dosage: 100 Milligram
     Route: 048
     Dates: start: 20090417

REACTIONS (1)
  - Gallbladder disorder [Recovered/Resolved]
